FAERS Safety Report 6873608-1 (Version None)
Quarter: 2010Q3

REPORT INFORMATION
  Report Type: 
  Country: None (occurrence: None)
  Receive Date: 20100723
  Receipt Date: 20090401
  Transmission Date: 20110219
  Serious: No
  Sender: FDA-Public Use
  Company Number: US-PFIZER INC-2009168600

PATIENT
  Sex: Male
  Weight: 88 kg

DRUGS (6)
  1. CHANTIX [Suspect]
     Indication: SMOKING CESSATION THERAPY
     Route: 048
     Dates: start: 20080913, end: 20090101
  2. ACETYLSALICYLIC ACID ENTERIC COATED [Concomitant]
     Dosage: UNK
  3. ATENOLOL [Concomitant]
     Dosage: UNK
  4. CLARITIN [Concomitant]
     Dosage: UNK
  5. CLOPIDOGREL [Concomitant]
     Dosage: UNK
  6. ROSUVASTATIN [Concomitant]
     Dosage: UNK

REACTIONS (6)
  - AGITATION [None]
  - ANXIETY [None]
  - DISTURBANCE IN ATTENTION [None]
  - INSOMNIA [None]
  - MIDDLE INSOMNIA [None]
  - TREMOR [None]
